FAERS Safety Report 7408601-3 (Version None)
Quarter: 2011Q2

REPORT INFORMATION
  Report Type: 
  Country: None (occurrence: None)
  Receive Date: 20110412
  Receipt Date: 20110315
  Transmission Date: 20111010
  Serious: Yes (Other)
  Sender: FDA-Public Use
  Company Number: PHHY2010DE87921

PATIENT
  Age: 65 Year
  Sex: Male

DRUGS (2)
  1. MYCOPHENOLIC ACID [Suspect]
     Dosage: 720 MG
     Route: 048
     Dates: start: 20090211, end: 20090629
  2. MYCOPHENOLIC ACID [Suspect]
     Indication: RENAL TRANSPLANT
     Dosage: 1440 MG
     Route: 048
     Dates: start: 20090204, end: 20090210

REACTIONS (8)
  - BENCE JONES PROTEINURIA [None]
  - KIDNEY TRANSPLANT REJECTION [None]
  - HYPOKALAEMIA [None]
  - ACCELERATED HYPERTENSION [None]
  - DIARRHOEA [None]
  - GASTROENTERITIS VIRAL [None]
  - GUILLAIN-BARRE SYNDROME [None]
  - CYTOMEGALOVIRUS INFECTION [None]
